FAERS Safety Report 20547303 (Version 3)
Quarter: 2023Q2

REPORT INFORMATION
  Report Type: Spontaneous
  Country: US (occurrence: US)
  Receive Date: 20220303
  Receipt Date: 20230609
  Transmission Date: 20230721
  Serious: Yes (Hospitalization)
  Sender: FDA-Public Use
  Company Number: US-PFIZER INC-202200341042

PATIENT
  Age: 87 Year
  Sex: Female
  Weight: 87.09 kg

DRUGS (3)
  1. VYNDAMAX [Suspect]
     Active Substance: TAFAMIDIS
     Indication: Amyloidosis
     Dosage: 61 MG, DAILY (1 TABLET BY MOUTH DAILY, 61MG )
     Route: 048
     Dates: start: 2021
  2. VYNDAMAX [Suspect]
     Active Substance: TAFAMIDIS
     Indication: Cardiac disorder
  3. VYNDAMAX [Suspect]
     Active Substance: TAFAMIDIS
     Indication: Cardiac failure congestive

REACTIONS (3)
  - Rectal haemorrhage [Unknown]
  - Peripheral swelling [Unknown]
  - Asthenia [Unknown]
